FAERS Safety Report 10418171 (Version 2)
Quarter: 2014Q3

REPORT INFORMATION
  Report Type: Report from Study
  Country: JP (occurrence: JP)
  Receive Date: 20140829
  Receipt Date: 20140829
  Transmission Date: 20150326
  Serious: Yes (Hospitalization)
  Sender: FDA-Public Use
  Company Number: JP-SA-2014SA024554

PATIENT
  Age: 40 Year
  Sex: Female
  Weight: 36.3 kg

DRUGS (9)
  1. ALKERAN [Concomitant]
     Active Substance: MELPHALAN
     Indication: BONE MARROW CONDITIONING REGIMEN
     Dates: start: 20130614, end: 20130615
  2. THYMOGLOBULINE [Suspect]
     Active Substance: LAPINE T-LYMPHOCYTE IMMUNE GLOBULIN
     Indication: BONE MARROW CONDITIONING REGIMEN
     Route: 042
     Dates: start: 20130601, end: 20130603
  3. PROGRAF [Suspect]
     Active Substance: TACROLIMUS\TACROLIMUS ANHYDROUS
     Indication: PROPHYLAXIS
     Route: 065
     Dates: start: 20130616
  4. FUNGUARD [Concomitant]
     Active Substance: MICAFUNGIN SODIUM
     Indication: INFECTION PROPHYLAXIS
     Dates: start: 20130623, end: 20130724
  5. ITRIZOLE [Concomitant]
     Active Substance: ITRACONAZOLE
     Indication: INFECTION PROPHYLAXIS
     Dates: start: 20130601
  6. FLUDARA [Suspect]
     Active Substance: FLUDARABINE PHOSPHATE
     Indication: BONE MARROW CONDITIONING REGIMEN
     Route: 065
     Dates: start: 20130610, end: 20130615
  7. CELLCEPT [Suspect]
     Active Substance: MYCOPHENOLATE MOFETIL\MYCOPHENOLATE MOFETIL HYDROCHLORIDE
     Indication: PROPHYLAXIS AGAINST GRAFT VERSUS HOST DISEASE
     Route: 065
     Dates: start: 20130617, end: 20130726
  8. HACHIAZULE [Concomitant]
     Indication: CHRONIC GRAFT VERSUS HOST DISEASE
  9. CRAVIT [Concomitant]
     Active Substance: LEVOFLOXACIN
     Indication: INFECTION PROPHYLAXIS
     Dates: start: 20130705, end: 20130731

REACTIONS (13)
  - Febrile neutropenia [Recovered/Resolved]
  - Acute graft versus host disease [Recovered/Resolved]
  - Pyrexia [Recovered/Resolved]
  - Diarrhoea [Recovered/Resolved]
  - Erythema multiforme [Recovered/Resolved]
  - Aspartate aminotransferase increased [Recovered/Resolved]
  - Neuropathy peripheral [Recovered/Resolved]
  - Atelectasis [Recovered/Resolved]
  - Nausea [Recovered/Resolved]
  - Bronchopulmonary aspergillosis [Recovered/Resolved]
  - Decreased appetite [Recovered/Resolved]
  - Alanine aminotransferase increased [Recovered/Resolved]
  - Urethral disorder [Recovered/Resolved]

NARRATIVE: CASE EVENT DATE: 20130601
